FAERS Safety Report 9396039 (Version 1)
Quarter: 2013Q3

REPORT INFORMATION
  Report Type: Spontaneous
  Country: US (occurrence: US)
  Receive Date: 20130711
  Receipt Date: 20130711
  Transmission Date: 20140515
  Serious: Yes (Hospitalization)
  Sender: FDA-Public Use
  Company Number: US-GLAXOSMITHKLINE-B0702572A

PATIENT
  Age: 57 Year
  Sex: Female

DRUGS (1)
  1. ORLISTAT [Suspect]
     Indication: WEIGHT DECREASED
     Dosage: 60MG PER DAY
     Route: 065

REACTIONS (12)
  - Hypersensitivity vasculitis [Recovered/Resolved]
  - Dermatitis bullous [Unknown]
  - Skin ulcer [Unknown]
  - Impaired healing [Unknown]
  - Pain [Unknown]
  - Rash [Unknown]
  - Rash pruritic [Unknown]
  - Skin lesion [Unknown]
  - Papule [Unknown]
  - Skin plaque [Unknown]
  - Blood blister [Unknown]
  - Blister [Unknown]
